FAERS Safety Report 5999908-5 (Version None)
Quarter: 2008Q4

REPORT INFORMATION
  Report Type: 
  Country: None (occurrence: None)
  Receive Date: 20081215
  Receipt Date: 20081205
  Transmission Date: 20090506
  Serious: Yes (Other)
  Sender: FDA-Public Use
  Company Number: PHHY2008FR29908

PATIENT
  Sex: Female

DRUGS (2)
  1. ZOLEDRONIC ACID [Suspect]
     Indication: INTERVERTEBRAL DISC COMPRESSION
     Dosage: 5 MG, UNK
     Route: 042
  2. ZOLEDRONIC ACID [Suspect]
     Indication: OSTEOPOROSIS

REACTIONS (4)
  - GAIT DISTURBANCE [None]
  - OEDEMA PERIPHERAL [None]
  - PAIN [None]
  - SPONTANEOUS HAEMATOMA [None]
